FAERS Safety Report 6411215-5 (Version None)
Quarter: 2009Q4

REPORT INFORMATION
  Report Type: 
  Country: None (occurrence: None)
  Receive Date: 20091020
  Receipt Date: 20091006
  Transmission Date: 20100525
  Serious: Yes (Life-Threatening)
  Sender: FDA-Public Use
  Company Number: CFNP-400-1

PATIENT
  Age: 73 Year
  Sex: Male

DRUGS (2)
  1. MEIACT MS (CEFDITOREN PIVOXIL) [Suspect]
     Indication: INFECTION PROPHYLAXIS
     Dosage: 300 MG/DAY/PO
     Route: 048
     Dates: start: 20090919, end: 20090930
  2. LOXONIN (LOXOPROFEN SODIUM HYDRATE) [Concomitant]

REACTIONS (1)
  - IDIOPATHIC THROMBOCYTOPENIC PURPURA [None]
